FAERS Safety Report 6948254-1 (Version None)
Quarter: 2010Q3

REPORT INFORMATION
  Report Type: 
  Country: None (occurrence: None)
  Receive Date: 20100828
  Receipt Date: 20091026
  Transmission Date: 20110219
  Serious: No
  Sender: FDA-Public Use
  Company Number: US-ABBOTT-09P-163-0605265-00

PATIENT
  Sex: Female
  Weight: 95.34 kg

DRUGS (10)
  1. NIASPAN [Suspect]
     Indication: PRODUCT USED FOR UNKNOWN INDICATION
     Route: 048
     Dates: start: 20091017
  2. NADOLOL [Concomitant]
     Indication: PRODUCT USED FOR UNKNOWN INDICATION
     Route: 048
  3. ASPIRIN [Concomitant]
     Indication: PRODUCT USED FOR UNKNOWN INDICATION
     Route: 048
  4. CRESTOR [Concomitant]
     Indication: PRODUCT USED FOR UNKNOWN INDICATION
     Route: 048
  5. PLAVIX [Concomitant]
     Indication: PRODUCT USED FOR UNKNOWN INDICATION
     Route: 048
  6. HYDROCHLOROTHIAZIDE [Concomitant]
     Indication: PRODUCT USED FOR UNKNOWN INDICATION
     Route: 048
  7. ANTIBIOTICS [Concomitant]
     Indication: TOOTHACHE
     Dates: end: 20091001
  8. ANTIBIOTICS [Concomitant]
     Indication: ENDODONTIC PROCEDURE
  9. IBUPROFEN [Concomitant]
     Indication: TOOTHACHE
     Route: 048
     Dates: end: 20091001
  10. IBUPROFEN [Concomitant]
     Indication: ENDODONTIC PROCEDURE

REACTIONS (3)
  - FLUSHING [None]
  - FORMICATION [None]
  - PRURITUS [None]
